FAERS Safety Report 22959559 (Version 3)
Quarter: 2023Q4

REPORT INFORMATION
  Report Type: Report from Study
  Country: US (occurrence: US)
  Receive Date: 20230920
  Receipt Date: 20231103
  Transmission Date: 20240109
  Serious: No
  Sender: FDA-Public Use
  Company Number: US-002147023-NVSC2023US199169

PATIENT
  Sex: Female

DRUGS (1)
  1. ENTRESTO [Suspect]
     Active Substance: SACUBITRIL\VALSARTAN
     Indication: Product used for unknown indication
     Dosage: 1 DOSAGE FORM, BID (24/26 MG)
     Route: 048
     Dates: start: 20230727

REACTIONS (7)
  - Fungal infection [Unknown]
  - Cough [Unknown]
  - Blood glucose increased [Unknown]
  - Foot fracture [Unknown]
  - Fall [Unknown]
  - Limb discomfort [Unknown]
  - Dry throat [Unknown]
